FAERS Safety Report 15465025 (Version 1)
Quarter: 2018Q4

REPORT INFORMATION
  Report Type: Report from Study
  Country: None (occurrence: US)
  Receive Date: 20181004
  Receipt Date: 20181004
  Transmission Date: 20190204
  Serious: Yes (Hospitalization, Other)
  Sender: FDA-Public Use
  Company Number: US-ABBVIE-18K-163-2303118-00

PATIENT
  Age: 64 Year
  Sex: Male
  Weight: 77.18 kg

DRUGS (6)
  1. PREDNISONE. [Concomitant]
     Active Substance: PREDNISONE
     Indication: PSORIATIC ARTHROPATHY
  2. HUMIRA [Suspect]
     Active Substance: ADALIMUMAB
     Indication: PSORIATIC ARTHROPATHY
     Route: 058
     Dates: start: 2015, end: 201712
  3. HUMIRA [Suspect]
     Active Substance: ADALIMUMAB
     Route: 058
     Dates: start: 201802, end: 20180917
  4. NORCO [Concomitant]
     Active Substance: ACETAMINOPHEN\HYDROCODONE BITARTRATE
     Indication: PSORIATIC ARTHROPATHY
  5. DICLOFENAC [Concomitant]
     Active Substance: DICLOFENAC
     Indication: PSORIATIC ARTHROPATHY
  6. HYDROCHLOROTHIAZIDE. [Concomitant]
     Active Substance: HYDROCHLOROTHIAZIDE
     Indication: HYPERTENSION

REACTIONS (3)
  - Cartilage atrophy [Recovered/Resolved]
  - Prostate cancer [Recovered/Resolved]
  - Psoriatic arthropathy [Unknown]

NARRATIVE: CASE EVENT DATE: 2015
